FAERS Safety Report 6762332-1 (Version None)
Quarter: 2010Q2

REPORT INFORMATION
  Report Type: 
  Country: None (occurrence: None)
  Receive Date: 20100609
  Receipt Date: 20100601
  Transmission Date: 20101027
  Serious: Yes (Hospitalization)
  Sender: FDA-Public Use
  Company Number: PHHO2010LT07054

PATIENT
  Sex: Male
  Weight: 123 kg

DRUGS (6)
  1. ACZ885 ACZ+ [Suspect]
     Indication: GOUT
     Dosage: UNK
     Dates: start: 20100311
  2. ALLOPURINOL [Concomitant]
  3. LERCAN [Concomitant]
  4. PRITOR [Concomitant]
  5. METFORAL [Concomitant]
  6. ACTOS [Concomitant]

REACTIONS (6)
  - BLINDNESS [None]
  - RETINAL ARTERY OCCLUSION [None]
  - RETINAL ARTERY THROMBOSIS [None]
  - RETINAL ISCHAEMIA [None]
  - RETINAL OEDEMA [None]
  - VASOSPASM [None]
